FAERS Safety Report 4595123-0 (Version None)
Quarter: 2005Q1

REPORT INFORMATION
  Report Type: 
  Country: None (occurrence: None)
  Receive Date: 20050225
  Receipt Date: 20050210
  Transmission Date: 20050727
  Serious: Yes (Hospitalization)
  Sender: FDA-Public Use
  Company Number: 200510604BCC

PATIENT
  Age: 88 Year
  Sex: Female
  Weight: 53.0709 kg

DRUGS (6)
  1. ASPIRIN [Suspect]
  2. OS-CAL [Suspect]
  3. FEOSOL (FERROUS SULFATE) [Suspect]
     Dates: start: 20040301
  4. FOSAMAX [Concomitant]
  5. NIFEDIPINE [Concomitant]
  6. COZAAR [Concomitant]

REACTIONS (3)
  - ANAEMIA [None]
  - ASTHENIA [None]
  - CONDITION AGGRAVATED [None]
